FAERS Safety Report 14167242 (Version 1)
Quarter: 2017Q4

REPORT INFORMATION
  Report Type: Spontaneous
  Country: US (occurrence: US)
  Receive Date: 20171107
  Receipt Date: 20171107
  Transmission Date: 20180321
  Serious: Yes (Other)
  Sender: FDA-Public Use
  Company Number: US-BAUSCH-BL-2017-007475

PATIENT
  Sex: Female
  Weight: 60.84 kg

DRUGS (1)
  1. UCERIS [Suspect]
     Active Substance: BUDESONIDE
     Indication: COLITIS MICROSCOPIC
     Route: 048
     Dates: start: 201510, end: 201703

REACTIONS (13)
  - Amnesia [Unknown]
  - Cortisol decreased [Recovering/Resolving]
  - Back pain [Not Recovered/Not Resolved]
  - Fall [Unknown]
  - Confusional state [Unknown]
  - Off label use [Unknown]
  - Cushingoid [Recovering/Resolving]
  - Abdominal distension [Recovering/Resolving]
  - Adrenal disorder [Unknown]
  - Gait disturbance [Unknown]
  - Fatigue [Unknown]
  - Incorrect drug administration duration [Unknown]
  - Contusion [Unknown]
